FAERS Safety Report 23644591 (Version 1)
Quarter: 2024Q1

REPORT INFORMATION
  Report Type: Report from Study
  Country: GB (occurrence: GB)
  Receive Date: 20240318
  Receipt Date: 20240318
  Transmission Date: 20240410
  Serious: Yes (Hospitalization)
  Sender: FDA-Public Use
  Company Number: GB-SANDOZ-SDZ2024GB018548

PATIENT
  Sex: Female

DRUGS (1)
  1. HYRIMOZ [Suspect]
     Active Substance: ADALIMUMAB-ADAZ
     Indication: Rheumatoid arthritis
     Dosage: 40 MG, Q2W
     Route: 058
     Dates: start: 20240119, end: 20240221

REACTIONS (10)
  - Gastrooesophageal reflux disease [Not Recovered/Not Resolved]
  - Fall [Not Recovered/Not Resolved]
  - Infection [Unknown]
  - Product storage error [Unknown]
  - Product dose omission issue [Unknown]
  - Treatment delayed [Unknown]
  - Injection site bruising [Recovered/Resolved]
  - Musculoskeletal discomfort [Unknown]
  - Productive cough [Unknown]
  - Sputum discoloured [Unknown]
